FAERS Safety Report 22595791 (Version 1)
Quarter: 2023Q2

REPORT INFORMATION
  Report Type: Spontaneous
  Country: GB (occurrence: GB)
  Receive Date: 20230613
  Receipt Date: 20230613
  Transmission Date: 20230721
  Serious: Yes (Death, Other)
  Sender: FDA-Public Use
  Company Number: None

PATIENT
  Age: 78 Year
  Sex: Male

DRUGS (1)
  1. EDOXABAN [Suspect]
     Active Substance: EDOXABAN
     Indication: Atrial fibrillation
     Dosage: 60 MG, QD
     Route: 065
     Dates: start: 2018

REACTIONS (4)
  - Gastrointestinal haemorrhage [Fatal]
  - Abdominal distension [Unknown]
  - Haematemesis [Unknown]
  - Cyanosis [Unknown]

NARRATIVE: CASE EVENT DATE: 20230311
